FAERS Safety Report 5671280-X (Version None)
Quarter: 2008Q1

REPORT INFORMATION
  Report Type: 
  Country: None (occurrence: None)
  Receive Date: 20080318
  Receipt Date: 20080306
  Transmission Date: 20080703
  Serious: Yes (Other)
  Sender: FDA-Public Use
  Company Number: BR-PFIZER INC-2008021751

PATIENT
  Sex: Female

DRUGS (1)
  1. ZOLOFT [Suspect]
     Route: 048

REACTIONS (1)
  - TENOSYNOVITIS [None]
